FAERS Safety Report 6424418-0 (Version None)
Quarter: 2009Q4

REPORT INFORMATION
  Report Type: 
  Country: None (occurrence: None)
  Receive Date: 20091103
  Receipt Date: 20091027
  Transmission Date: 20100525
  Serious: Yes (Hospitalization)
  Sender: FDA-Public Use
  Company Number: CA-JNJFOC-20090601503

PATIENT
  Age: 49 Year
  Sex: Female
  Weight: 97.98 kg

DRUGS (15)
  1. REMICADE [Suspect]
     Route: 042
  2. REMICADE [Suspect]
     Indication: RHEUMATOID ARTHRITIS
     Route: 042
  3. ZOPICLONE [Concomitant]
     Indication: DEPRESSION
     Route: 048
  4. CITALOPRAM [Concomitant]
     Indication: DEPRESSION
     Route: 048
  5. FOLIC ACID [Concomitant]
     Indication: RHEUMATOID ARTHRITIS
     Route: 048
  6. METHOTREXATE [Concomitant]
     Indication: RHEUMATOID ARTHRITIS
     Route: 048
  7. SYNTHROID [Concomitant]
     Indication: HYPOTHYROIDISM
     Route: 048
  8. AMITRIPTYLINE [Concomitant]
     Indication: DEPRESSION
     Route: 048
  9. LANSOPRAZOLE [Concomitant]
     Indication: GASTROOESOPHAGEAL REFLUX DISEASE
     Route: 048
  10. SINGULAIR [Concomitant]
     Indication: ASTHMA
     Route: 048
  11. DIOVAN [Concomitant]
     Indication: HYPERTENSION
     Route: 048
  12. ALBUTEROL [Concomitant]
     Indication: ASTHMA
     Dosage: 2 PUFFS EVERY 4 HOURS AS NEEDED
     Route: 055
  13. ADVAIR DISKUS 100/50 [Concomitant]
     Indication: ASTHMA
     Dosage: 1 PUFF TWICE/DAY
     Route: 055
  14. OXYCET [Concomitant]
     Indication: PAIN
     Dosage: 1-2 TABS EVERY 4 HOURS AS NEEDED.
     Route: 048
  15. ZYPREXA [Concomitant]
     Indication: DEPRESSION
     Route: 048

REACTIONS (3)
  - HERPES ZOSTER [None]
  - MENINGITIS VIRAL [None]
  - TYPE 2 DIABETES MELLITUS [None]
